FAERS Safety Report 7346085-4 (Version None)
Quarter: 2011Q1

REPORT INFORMATION
  Report Type: 
  Country: None (occurrence: None)
  Receive Date: 20110311
  Receipt Date: 20110223
  Transmission Date: 20110831
  Serious: Yes (Hospitalization)
  Sender: FDA-Public Use
  Company Number: US-BAYER-201038263NA

PATIENT
  Sex: Female
  Weight: 108.84 kg

DRUGS (22)
  1. VICODIN [Concomitant]
  2. MULTI-VITAMIN [Concomitant]
  3. GUAIFENEX PSE [Concomitant]
  4. ULTRAM [Concomitant]
     Indication: PAIN
  5. YAZ [Suspect]
     Indication: ENDOMETRIOSIS
  6. ZOLOFT [Concomitant]
     Indication: ANXIETY DISORDER
     Dosage: 100 MG, UNK
  7. CALCIUM [Concomitant]
  8. LEVAQUIN [Concomitant]
     Dosage: 500 MG, UNK
  9. ZITHROMAX [Concomitant]
     Dosage: 250 MG, UNK
  10. YASMIN [Suspect]
     Indication: HAEMORRHAGE
  11. YAZ [Suspect]
     Indication: HAEMORRHAGE
  12. BEXTRA [Concomitant]
     Dosage: UNK
  13. AMITRIPTYLINE HCL [Concomitant]
     Dosage: 25 MG, UNK
  14. TRAMADOL HCL [Concomitant]
     Dosage: 50 MG, UNK
  15. YASMIN [Suspect]
     Indication: ENDOMETRIOSIS
  16. CYMBALTA [Concomitant]
     Indication: FIBROMYALGIA
  17. YAZ [Suspect]
     Indication: PREMENSTRUAL SYNDROME
     Dosage: UNK
     Route: 048
     Dates: end: 20030819
  18. YASMIN [Suspect]
     Indication: PREMENSTRUAL SYNDROME
     Dosage: UNK
     Route: 048
     Dates: start: 20010101, end: 20030819
  19. CYMBALTA [Concomitant]
     Indication: ANXIETY
  20. ZOLOFT [Concomitant]
     Indication: DEPRESSION
     Dosage: 100 MG, UNK
     Route: 048
     Dates: start: 20001016, end: 20050101
  21. CYMBALTA [Concomitant]
     Indication: DEPRESSION
     Dosage: UNK
     Dates: start: 20050101
  22. ZITHROMAX [Concomitant]

REACTIONS (4)
  - OEDEMA PERIPHERAL [None]
  - PAIN [None]
  - PARAESTHESIA [None]
  - DEEP VEIN THROMBOSIS [None]
